FAERS Safety Report 21086943 (Version 1)
Quarter: 2022Q3

REPORT INFORMATION
  Report Type: Spontaneous
  Country: US (occurrence: US)
  Receive Date: 20220715
  Receipt Date: 20220715
  Transmission Date: 20221027
  Serious: Yes (Hospitalization)
  Sender: FDA-Public Use
  Company Number: US-STRIDES ARCOLAB LIMITED-2021SP027127

PATIENT
  Age: 12 Year
  Sex: Male

DRUGS (7)
  1. MYCOPHENOLATE MOFETIL [Suspect]
     Active Substance: MYCOPHENOLATE MOFETIL
     Indication: Post transplant lymphoproliferative disorder
     Dosage: UNK
     Route: 065
  2. PREDNISOLONE ACETATE [Suspect]
     Active Substance: PREDNISOLONE ACETATE
     Indication: Post transplant lymphoproliferative disorder
     Dosage: UNK
     Route: 061
  3. PREDNISOLONE ACETATE [Suspect]
     Active Substance: PREDNISOLONE ACETATE
     Dosage: UNK, 3-4 TIMES DAILY
     Route: 061
  4. PREDNISOLONE ACETATE [Suspect]
     Active Substance: PREDNISOLONE ACETATE
     Dosage: UNK, 6 TIMES DAILY
     Route: 061
  5. PREDNISOLONE ACETATE [Suspect]
     Active Substance: PREDNISOLONE ACETATE
     Dosage: UNK, TAPERED 3 TIMES DAILY
     Route: 061
  6. PREDNISOLONE ACETATE [Suspect]
     Active Substance: PREDNISOLONE ACETATE
     Dosage: UNK, TAPERED FURTHER
     Route: 061
  7. PREDNISOLONE ACETATE [Suspect]
     Active Substance: PREDNISOLONE ACETATE
     Dosage: UNK, WEANED (SEVERAL ATTEMPTS TO WEAN PREDNISOLONE ACETATE RESULTED IN DISEASE PROGRESSION)
     Route: 061

REACTIONS (1)
  - Drug ineffective for unapproved indication [Unknown]
